FAERS Safety Report 9680592 (Version 1)
Quarter: 2013Q4

REPORT INFORMATION
  Report Type: Spontaneous
  Country: US (occurrence: US)
  Receive Date: 20131111
  Receipt Date: 20131111
  Transmission Date: 20140711
  Serious: No
  Sender: FDA-Public Use
  Company Number: US-PFIZER INC-2013317551

PATIENT
  Age: 56 Year
  Sex: Female
  Weight: 71.2 kg

DRUGS (1)
  1. LYRICA [Suspect]
     Indication: FIBROMYALGIA
     Dosage: 75 MG, 3X/DAY
     Dates: end: 2013

REACTIONS (4)
  - Irritability [Unknown]
  - Stress [Unknown]
  - Emotional disorder [Unknown]
  - Pain [Unknown]
